FAERS Safety Report 22253151 (Version 2)
Quarter: 2023Q2

REPORT INFORMATION
  Report Type: Report from Study
  Country: BR (occurrence: BR)
  Receive Date: 20230426
  Receipt Date: 20230507
  Transmission Date: 20230722
  Serious: Yes (Other)
  Sender: FDA-Public Use
  Company Number: BR-JNJFOC-20230445139

PATIENT
  Age: 16 Year
  Sex: Female
  Weight: 44 kg

DRUGS (1)
  1. REMICADE [Suspect]
     Active Substance: INFLIXIMAB
     Indication: Colitis ulcerative
     Dosage: 4 AMPOULES
     Route: 041
     Dates: start: 20220217

REACTIONS (5)
  - Colitis ulcerative [Unknown]
  - Weight increased [Unknown]
  - Anaemia [Unknown]
  - Drug ineffective [Unknown]
  - Off label use [Unknown]
